FAERS Safety Report 26085858 (Version 2)
Quarter: 2025Q4

REPORT INFORMATION
  Report Type: Report from Study
  Country: US (occurrence: US)
  Receive Date: 20251125
  Receipt Date: 20251208
  Transmission Date: 20260117
  Serious: Yes (Hospitalization)
  Sender: TAKEDA
  Company Number: US-TAKEDA-2024TUS059773

PATIENT
  Age: 67 Year
  Sex: Female

DRUGS (4)
  1. TEDUGLUTIDE [Suspect]
     Active Substance: TEDUGLUTIDE
     Indication: Short-bowel syndrome
     Dosage: 0.269 MILLILITER, QD
     Dates: start: 20240430
  2. TEDUGLUTIDE [Suspect]
     Active Substance: TEDUGLUTIDE
     Dosage: UNK
  3. TEDUGLUTIDE [Suspect]
     Active Substance: TEDUGLUTIDE
     Dosage: UNK
  4. TEDUGLUTIDE [Suspect]
     Active Substance: TEDUGLUTIDE
     Dosage: 0.05 MG/KG

REACTIONS (9)
  - Asthenia [Unknown]
  - Dehydration [Unknown]
  - Stoma site oedema [Unknown]
  - Urine output decreased [Unknown]
  - Weight decreased [Unknown]
  - Product container issue [Unknown]
  - Therapeutic product effect decreased [Unknown]
  - Product dose omission issue [Unknown]
  - Abdominal distension [Unknown]

NARRATIVE: CASE EVENT DATE: 20250125
